FAERS Safety Report 8094779-8 (Version None)
Quarter: 2012Q1

REPORT INFORMATION
  Report Type: 
  Country: None (occurrence: None)
  Receive Date: 20120129
  Receipt Date: 20111209
  Transmission Date: 20120608
  Serious: No
  Sender: FDA-Public Use
  Company Number: US-ABBOTT-11P-163-0882534-00

PATIENT
  Age: 26 Year
  Sex: Female

DRUGS (2)
  1. HUMIRA [Suspect]
     Indication: PSORIASIS
     Dates: end: 20110601
  2. HUMIRA [Suspect]

REACTIONS (4)
  - RASH PRURITIC [None]
  - RASH MACULAR [None]
  - PSORIASIS [None]
  - RASH [None]
